FAERS Safety Report 4990818-9 (Version None)
Quarter: 2006Q2

REPORT INFORMATION
  Report Type: 
  Country: None (occurrence: None)
  Receive Date: 20060428
  Receipt Date: 20060418
  Transmission Date: 20061013
  Serious: Yes (Hospitalization, Other)
  Sender: FDA-Public Use
  Company Number: JP200604001568

PATIENT
  Age: 74 Year
  Sex: Female
  Weight: 55 kg

DRUGS (3)
  1. EVISTA [Suspect]
     Indication: OSTEOPOROSIS POSTMENOPAUSAL
     Dosage: 60 MG, DAILY (1/D),  ORAL
     Route: 048
     Dates: start: 20060131, end: 20060218
  2. MIYA-BM (CLOSTRIDIUM BUTYRICUM) [Concomitant]
  3. FAMOTIDINE [Concomitant]

REACTIONS (3)
  - CEREBRAL ARTERY STENOSIS [None]
  - FALL [None]
  - THROMBOTIC STROKE [None]
